FAERS Safety Report 14850514 (Version 1)
Quarter: 2018Q2

REPORT INFORMATION
  Report Type: Spontaneous
  Country: RO (occurrence: RO)
  Receive Date: 20180505
  Receipt Date: 20180505
  Transmission Date: 20180711
  Serious: Yes (Hospitalization)
  Sender: FDA-Public Use
  Company Number: RO-AUROBINDO-AUR-APL-2018-024136

PATIENT
  Age: 1 Month
  Sex: Male

DRUGS (2)
  1. TOBREX [Concomitant]
     Active Substance: TOBRAMYCIN
     Indication: PRODUCT USED FOR UNKNOWN INDICATION
     Dosage: 3 X 2 DROPS/DAY
     Route: 065
     Dates: start: 20180410, end: 20180414
  2. AMOXICILLIN+CLAVULANIC ACID [Suspect]
     Active Substance: AMOXICILLIN\CLAVULANIC ACID
     Indication: TRACHEITIS
     Dosage: 2.5 ML X 3/DAY ()
     Route: 048
     Dates: start: 20180410, end: 20180410

REACTIONS (1)
  - Diarrhoea [Recovered/Resolved]

NARRATIVE: CASE EVENT DATE: 20180410
